FAERS Safety Report 6184234-4 (Version None)
Quarter: 2009Q2

REPORT INFORMATION
  Report Type: 
  Country: None (occurrence: None)
  Receive Date: 20090508
  Receipt Date: 20090504
  Transmission Date: 20091009
  Serious: Yes (Other)
  Sender: FDA-Public Use
  Company Number: US-ROXANE LABORATORIES, INC.-2009-RO-00454RO

PATIENT
  Age: 60 Year
  Sex: Male

DRUGS (14)
  1. METHOTREXATE [Suspect]
     Indication: B-CELL LYMPHOMA
     Route: 042
  2. METHOTREXATE [Suspect]
  3. METHOTREXATE [Suspect]
  4. LEUCOVORIN CALCIUM [Suspect]
     Indication: DRUG TOXICITY PROPHYLAXIS
     Dosage: 100MG
     Route: 042
  5. LEUCOVORIN CALCIUM [Suspect]
     Route: 048
  6. LEUCOVORIN CALCIUM [Suspect]
     Route: 042
  7. RITUXIMAB [Suspect]
     Indication: B-CELL LYMPHOMA
     Route: 042
  8. LIPOSOMAL CYTARABINE [Suspect]
     Indication: B-CELL LYMPHOMA
     Route: 037
  9. SODIUM CHLORIDE [Suspect]
     Indication: FLUID REPLACEMENT
     Route: 042
  10. SODIUM BICARBONATE IN PLASTIC CONTAINER [Suspect]
     Indication: BLOOD BICARBONATE ABNORMAL
     Route: 042
  11. SODIUM BICARBONATE IN PLASTIC CONTAINER [Suspect]
     Dosage: 15600MG
     Route: 048
  12. SODIUM BICARBONATE IN PLASTIC CONTAINER [Suspect]
     Route: 042
  13. RITUXAN [Concomitant]
     Indication: B-CELL LYMPHOMA
  14. DEXTROSE 5% [Concomitant]
     Indication: FLUID REPLACEMENT
     Route: 042

REACTIONS (5)
  - DRUG CLEARANCE DECREASED [None]
  - DRUG TOXICITY [None]
  - LEUKOPENIA [None]
  - RENAL FAILURE [None]
  - STOMATITIS [None]
